FAERS Safety Report 4913562-2 (Version None)
Quarter: 2006Q1

REPORT INFORMATION
  Report Type: 
  Country: None (occurrence: None)
  Receive Date: 20060216
  Receipt Date: 20051013
  Transmission Date: 20060701
  Serious: Yes (Other)
  Sender: FDA-Public Use
  Company Number: 2005UW15587

PATIENT
  Age: 69 Year
  Sex: Male
  Weight: 100 kg

DRUGS (23)
  1. CRESTOR [Suspect]
     Route: 048
     Dates: start: 20040115
  2. CRESTOR [Suspect]
     Route: 048
  3. ASPIRIN [Concomitant]
     Route: 048
     Dates: start: 20050113
  4. COUMADIN [Concomitant]
     Indication: ANTICOAGULATION DRUG LEVEL
     Route: 048
     Dates: start: 20021028
  5. COUMADIN [Concomitant]
     Dosage: ALTERNATE DAYS
     Route: 048
  6. PARIET [Concomitant]
     Route: 048
     Dates: start: 20040913
  7. FLOMAX [Concomitant]
     Indication: BENIGN PROSTATIC HYPERPLASIA
     Route: 048
     Dates: start: 20030730
  8. LORAZEPAM [Concomitant]
     Dosage: PRN
     Route: 048
     Dates: start: 20021028
  9. REACTINE [Concomitant]
     Indication: HYPERSENSITIVITY
     Route: 048
     Dates: start: 20020101
  10. ASCORBIC ACID [Concomitant]
     Route: 048
  11. FLAXSEED OIL [Concomitant]
     Route: 048
  12. ZINC [Concomitant]
     Route: 048
  13. GINKGO BILOBA [Concomitant]
     Route: 048
  14. GLUCOSAMINE CHONDROITIN [Concomitant]
     Route: 048
  15. APPLE CIDER VINEGAR [Concomitant]
     Route: 048
  16. BETACAROTENE [Concomitant]
     Route: 048
  17. VITAMIN B COMPLEX CAP [Concomitant]
     Route: 048
  18. PYGEUM [Concomitant]
     Route: 048
  19. SAW PALMETTO  BERRIES [Concomitant]
     Route: 048
  20. MAXIMUM STRENGTH GARLIC [Concomitant]
     Route: 048
  21. ROBAXACET [Concomitant]
  22. SELENIUM SULFIDE [Concomitant]
     Route: 048
  23. VITAMIN E [Concomitant]
     Route: 048

REACTIONS (4)
  - CEREBRAL ATROPHY [None]
  - CEREBRAL ISCHAEMIA [None]
  - MICROANGIOPATHY [None]
  - TRANSIENT ISCHAEMIC ATTACK [None]
